FAERS Safety Report 7570497-7 (Version None)
Quarter: 2011Q2

REPORT INFORMATION
  Report Type: 
  Country: None (occurrence: None)
  Receive Date: 20110525
  Receipt Date: 20110419
  Transmission Date: 20111010
  Serious: No
  Sender: FDA-Public Use
  Company Number: 327171

PATIENT
  Age: 65 Year
  Sex: Female

DRUGS (4)
  1. LEVEMIR [Suspect]
     Indication: TYPE 2 DIABETES MELLITUS
     Dosage: AT BEDTIME, SUBCUTANEOUS
     Route: 058
     Dates: start: 20110101
  2. VICTOZA [Suspect]
     Indication: TYPE 2 DIABETES MELLITUS
     Dosage: 1.2 MG, QD IN MORNING, SUBCUTANEOUS
     Route: 058
     Dates: start: 20110101
  3. NOVOLOG [Suspect]
     Indication: TYPE 2 DIABETES MELLITUS
     Dosage: 5 U, PRN, SUBCUTANEOUS
     Route: 058
  4. BYETTA [Suspect]
     Indication: TYPE 2 DIABETES MELLITUS
     Dosage: SUBCUTANEOUS
     Route: 058

REACTIONS (2)
  - BLOOD GLUCOSE FLUCTUATION [None]
  - WEIGHT DECREASED [None]
